FAERS Safety Report 9145812 (Version 2)
Quarter: 2013Q1

REPORT INFORMATION
  Report Type: Spontaneous
  Country: US (occurrence: US)
  Receive Date: 20130307
  Receipt Date: 20130328
  Transmission Date: 20140127
  Serious: Yes (Other)
  Sender: FDA-Public Use
  Company Number: PHEH2013US005250

PATIENT
  Sex: Female
  Weight: 64.5 kg

DRUGS (6)
  1. AFINITOR [Suspect]
     Indication: BREAST CANCER
     Dosage: 10 MG, DAILY
     Route: 048
     Dates: start: 20130205
  2. AFINITOR [Suspect]
     Dosage: UNK UKN, UNK
  3. XELODA [Suspect]
  4. AROMASIN [Suspect]
  5. LETROZOL [Concomitant]
     Indication: BREAST CANCER
     Dosage: 25 MG, DAILY
     Route: 048
     Dates: start: 20120727
  6. SYNTHROID [Concomitant]
     Indication: HYPOTHYROIDISM
     Dosage: 25 MG, DAILY
     Route: 048
     Dates: start: 20110523

REACTIONS (10)
  - Hepatic necrosis [Unknown]
  - Eczema [Recovered/Resolved]
  - Carcinoembryonic antigen increased [Unknown]
  - Abdominal distension [Unknown]
  - Burning sensation [Unknown]
  - Eye pruritus [Unknown]
  - White blood cell count [Unknown]
  - Fatigue [Unknown]
  - Local swelling [Unknown]
  - Dry skin [Unknown]
